FAERS Safety Report 20843858 (Version 1)
Quarter: 2022Q2

REPORT INFORMATION
  Report Type: Spontaneous
  Country: US (occurrence: None)
  Receive Date: 20220517
  Receipt Date: 20220517
  Transmission Date: 20220720
  Serious: No
  Sender: FDA-Public Use
  Company Number: None

PATIENT
  Age: 36 Year
  Sex: Female

DRUGS (1)
  1. COSENTYX [Suspect]
     Active Substance: SECUKINUMAB
     Indication: Psoriasis
     Dosage: INJECT 300MG (2 SYRINGES) SUBCUTANEOUSLY EVERY WEEK FOR WEEKS 2 AND 3 AS DIRECTED?
     Route: 058
     Dates: start: 202109

REACTIONS (1)
  - Bacterial infection [None]
